FAERS Safety Report 10257206 (Version 1)
Quarter: 2014Q2

REPORT INFORMATION
  Report Type: Spontaneous
  Country: US (occurrence: None)
  Receive Date: 20140623
  Receipt Date: 20140623
  Transmission Date: 20141212
  Serious: Yes (Life-Threatening, Hospitalization)
  Sender: FDA-Public Use
  Company Number: None

PATIENT
  Age: 26 Year
  Sex: Female
  Weight: 72 kg

DRUGS (6)
  1. IVIG [Suspect]
     Indication: TOXIC EPIDERMAL NECROLYSIS
     Route: 042
     Dates: start: 20140617, end: 20140618
  2. IVIG [Suspect]
     Indication: TOXIC EPIDERMAL NECROLYSIS
     Route: 042
     Dates: start: 20140617, end: 20140618
  3. DIPHENHYDRAMINE/ACETAMINOPHEN [Concomitant]
  4. SENNA [Concomitant]
  5. COLACE [Concomitant]
  6. HEPARIN [Concomitant]

REACTIONS (1)
  - Transfusion-related acute lung injury [None]
